FAERS Safety Report 7998445-6 (Version None)
Quarter: 2011Q4

REPORT INFORMATION
  Report Type: 
  Country: None (occurrence: None)
  Receive Date: 20111221
  Receipt Date: 20111102
  Transmission Date: 20120403
  Serious: No
  Sender: FDA-Public Use
  Company Number: US-GLAXOSMITHKLINE-A0951647A

PATIENT
  Age: 48 Year
  Sex: Male

DRUGS (3)
  1. TRICOR [Concomitant]
  2. LOVAZA [Suspect]
     Indication: BLOOD TRIGLYCERIDES INCREASED
     Route: 048
     Dates: start: 20110902
  3. DIOVAN [Concomitant]

REACTIONS (1)
  - LOW DENSITY LIPOPROTEIN INCREASED [None]
